FAERS Safety Report 23343989 (Version 1)
Quarter: 2023Q4

REPORT INFORMATION
  Report Type: Spontaneous
  Country: US (occurrence: US)
  Receive Date: 20231227
  Receipt Date: 20231227
  Transmission Date: 20240109
  Serious: No
  Sender: FDA-Public Use
  Company Number: US-SA-SAC20231219000964

PATIENT

DRUGS (1)
  1. DUPIXENT [Suspect]
     Active Substance: DUPILUMAB
     Indication: Eosinophilic oesophagitis
     Dosage: UNK
     Route: 058

REACTIONS (5)
  - Injection site inflammation [Unknown]
  - Injection site rash [Unknown]
  - Injection site erythema [Unknown]
  - Injection site bruising [Recovering/Resolving]
  - Injection site pruritus [Unknown]
